FAERS Safety Report 9738964 (Version 2)
Quarter: 2014Q1

REPORT INFORMATION
  Report Type: Report from Study
  Country: BR (occurrence: BR)
  Receive Date: 20131209
  Receipt Date: 20140106
  Transmission Date: 20141002
  Serious: Yes (Other)
  Sender: FDA-Public Use
  Company Number: PHHY2013BR143023

PATIENT
  Sex: Female
  Weight: 70 kg

DRUGS (1)
  1. DIOVAN HCT [Suspect]
     Indication: HYPERTENSION
     Dosage: 1 DF, QD  (80 MG VASLA/12.5 MG HCT) IN THE MORNING
     Route: 048
     Dates: end: 20131203

REACTIONS (4)
  - Osteoarthritis [Recovering/Resolving]
  - Osteoporosis [Recovering/Resolving]
  - Blood pressure inadequately controlled [Recovered/Resolved]
  - Drug ineffective [Unknown]
